FAERS Safety Report 7030475-3 (Version None)
Quarter: 2010Q4

REPORT INFORMATION
  Report Type: 
  Country: None (occurrence: None)
  Receive Date: 20101006
  Receipt Date: 20100928
  Transmission Date: 20110411
  Serious: Yes (Other)
  Sender: FDA-Public Use
  Company Number: RO-SANOFI-AVENTIS-2010SA059594

PATIENT

DRUGS (2)
  1. FLUDARABINE PHOSPHATE [Suspect]
     Route: 048
  2. CYCLOPHOSPHAMIDE [Suspect]
     Route: 065

REACTIONS (1)
  - IDIOPATHIC THROMBOCYTOPENIC PURPURA [None]
